FAERS Safety Report 8946852 (Version 2)
Quarter: 2013Q1

REPORT INFORMATION
  Report Type: Spontaneous
  Country: US (occurrence: US)
  Receive Date: 20121205
  Receipt Date: 20130308
  Transmission Date: 20140127
  Serious: Yes (Other)
  Sender: FDA-Public Use
  Company Number: US-GLAXOSMITHKLINE-A1003378A

PATIENT
  Age: 54 Year
  Sex: Male

DRUGS (6)
  1. VENTOLIN [Suspect]
     Indication: ASTHMA
     Dosage: 2PUFF THREE TIMES PER DAY
     Route: 055
     Dates: start: 201012
  2. TYLENOL [Concomitant]
  3. IBUPROFEN [Concomitant]
  4. MUCINEX [Concomitant]
  5. PREDNISONE [Concomitant]
  6. DOXYCYCLINE [Concomitant]

REACTIONS (4)
  - Lower respiratory tract infection [Recovering/Resolving]
  - Nasopharyngitis [Recovering/Resolving]
  - Dyspnoea [Recovering/Resolving]
  - Mucous membrane disorder [Recovering/Resolving]
